FAERS Safety Report 6311417-2 (Version None)
Quarter: 2009Q3

REPORT INFORMATION
  Report Type: 
  Country: None (occurrence: None)
  Receive Date: 20090817
  Receipt Date: 20090805
  Transmission Date: 20100115
  Serious: Yes (Death)
  Sender: FDA-Public Use
  Company Number: GB-PFIZER INC-2009207817

PATIENT

DRUGS (4)
  1. SOMATROPIN [Suspect]
     Dosage: UNK
  2. LEVOTHYROXINE SODIUM [Concomitant]
     Dosage: 100 UG, 1X/DAY
     Route: 048
     Dates: start: 19860701
  3. HYDROCORTISONE SODIUM SUCCINATE [Concomitant]
     Dosage: 10 MG, 2X/DAY
     Route: 048
     Dates: start: 20061208
  4. ACETYLSALICYLIC ACID [Concomitant]
     Dosage: 75 MG, 1X/DAY
     Route: 048
     Dates: start: 20061208

REACTIONS (1)
  - DEATH [None]
